FAERS Safety Report 6501262-7 (Version None)
Quarter: 2009Q4

REPORT INFORMATION
  Report Type: 
  Country: None (occurrence: None)
  Receive Date: 20091216
  Receipt Date: 20091207
  Transmission Date: 20100525
  Serious: Yes (Hospitalization)
  Sender: FDA-Public Use
  Company Number: FR-PFIZER INC-2009306455

PATIENT
  Age: 38 Year
  Sex: Female

DRUGS (11)
  1. TAHOR [Suspect]
     Dosage: 20 MG, UNK
     Route: 048
  2. TRIFLUCAN [Suspect]
     Dosage: 50 MG, UNK
     Route: 048
  3. PREVISCAN [Suspect]
     Route: 048
  4. LANSOPRAZOLE [Suspect]
     Dosage: 30 MG, UNK
     Route: 048
  5. CARDENSIEL [Suspect]
     Dosage: 2.5 MG, UNK
     Route: 048
  6. ODRIK [Suspect]
     Dosage: 0.5 MG, UNK
     Route: 048
  7. LEXOMIL [Suspect]
     Route: 048
  8. KARDEGIC [Suspect]
     Dosage: 160 MG, UNK
     Route: 048
  9. IMUREL [Suspect]
     Dosage: 50 MG, UNK
     Route: 048
  10. ZELITREX [Suspect]
     Route: 048
  11. DAFALGAN [Suspect]
     Route: 048

REACTIONS (3)
  - INTENTIONAL OVERDOSE [None]
  - LOSS OF CONSCIOUSNESS [None]
  - POISONING DELIBERATE [None]
